FAERS Safety Report 9830679 (Version 1)
Quarter: 2014Q1

REPORT INFORMATION
  Report Type: Spontaneous
  Country: US (occurrence: US)
  Receive Date: 20140120
  Receipt Date: 20140120
  Transmission Date: 20141002
  Serious: No
  Sender: FDA-Public Use
  Company Number: US-TEVA-456818USA

PATIENT
  Age: 41 Year
  Sex: Female
  Weight: 90.8 kg

DRUGS (2)
  1. PARAGARD 380A [Suspect]
     Indication: CONTRACEPTION
     Route: 015
     Dates: start: 20130814
  2. VITAMINS [Concomitant]
     Indication: SUPPRESSED LACTATION

REACTIONS (1)
  - Menorrhagia [Not Recovered/Not Resolved]
